FAERS Safety Report 15188682 (Version 3)
Quarter: 2018Q3

REPORT INFORMATION
  Report Type: Spontaneous
  Country: US (occurrence: US)
  Receive Date: 20180724
  Receipt Date: 20180905
  Transmission Date: 20181010
  Serious: No
  Sender: FDA-Public Use
  Company Number: US-PFIZER INC-2018297498

PATIENT
  Sex: Female

DRUGS (2)
  1. ADVIL [Suspect]
     Active Substance: IBUPROFEN
     Indication: PAIN
     Dosage: 3 DF, DAILY (3 TABLETS AT A TIME)
  2. ADVIL [Suspect]
     Active Substance: IBUPROFEN
     Indication: SCIATICA

REACTIONS (1)
  - Drug ineffective [Unknown]
